FAERS Safety Report 4380751-8 (Version None)
Quarter: 2004Q2

REPORT INFORMATION
  Report Type: 
  Country: None (occurrence: None)
  Receive Date: 20040616
  Receipt Date: 20040602
  Transmission Date: 20050107
  Serious: Yes (Other)
  Sender: FDA-Public Use
  Company Number: CA_040506961

PATIENT
  Age: 74 Year
  Sex: Male
  Weight: 90 kg

DRUGS (9)
  1. ZYPREXA [Suspect]
     Dosage: 2.5 MG/1
     Dates: start: 20040518, end: 20040518
  2. ASPIRIN [Concomitant]
  3. PLAVIX [Concomitant]
  4. ENOXAPARIN SODIUM [Concomitant]
  5. LASIX [Concomitant]
  6. ATORVASTATIN CALCIUM [Concomitant]
  7. DESIPRAMINE HCL [Concomitant]
  8. METFORMIN HCL [Concomitant]
  9. METOPROLOL TARTRATE [Concomitant]

REACTIONS (3)
  - BLOOD PRESSURE SYSTOLIC INCREASED [None]
  - CEREBRAL ATROPHY [None]
  - REVERSIBLE ISCHAEMIC NEUROLOGICAL DEFICIT [None]
